FAERS Safety Report 7955682-4 (Version None)
Quarter: 2011Q4

REPORT INFORMATION
  Report Type: 
  Country: None (occurrence: None)
  Receive Date: 20111204
  Receipt Date: 20111115
  Transmission Date: 20120403
  Serious: No
  Sender: FDA-Public Use
  Company Number: US-ALLERGAN-1115021US

PATIENT
  Age: 18 Year
  Sex: Female

DRUGS (1)
  1. ACZONE [Suspect]
     Indication: ACNE
     Dosage: 1 APPLICATION BID
     Route: 061
     Dates: start: 20110926

REACTIONS (1)
  - ACNE [None]
